FAERS Safety Report 20749378 (Version 2)
Quarter: 2022Q2

REPORT INFORMATION
  Report Type: Spontaneous
  Country: US (occurrence: US)
  Receive Date: 20220426
  Receipt Date: 20220427
  Transmission Date: 20220720
  Serious: No
  Sender: FDA-Public Use
  Company Number: US-ELI_LILLY_AND_COMPANY-US202203013056

PATIENT
  Age: 70 Year
  Sex: Female

DRUGS (2)
  1. BASAGLAR [Suspect]
     Active Substance: INSULIN GLARGINE
     Indication: Diabetes mellitus
     Dosage: 30 U, DAILY (NIGHT)
     Route: 058
     Dates: start: 20220228
  2. TRULICITY [Concomitant]
     Active Substance: DULAGLUTIDE
     Indication: Type 2 diabetes mellitus

REACTIONS (5)
  - Inflammation [Recovering/Resolving]
  - Dyspnoea [Unknown]
  - Cough [Recovering/Resolving]
  - Nasal congestion [Unknown]
  - Injection site pain [Unknown]

NARRATIVE: CASE EVENT DATE: 20220228
